FAERS Safety Report 7638765-8 (Version None)
Quarter: 2011Q3

REPORT INFORMATION
  Report Type: 
  Country: None (occurrence: None)
  Receive Date: 20110727
  Receipt Date: 20110713
  Transmission Date: 20111222
  Serious: Yes (Death)
  Sender: FDA-Public Use
  Company Number: CA-ROCHE-790023

PATIENT
  Age: 48 Year

DRUGS (8)
  1. OXYCODONE HCL [Suspect]
     Route: 065
  2. GABAPENTIN [Suspect]
     Route: 065
  3. TRAZODONE HCL [Suspect]
     Route: 065
  4. ZESTORETIC [Concomitant]
     Route: 065
  5. DIAZEPAM [Suspect]
     Route: 065
  6. DIPHENHYDRAMINE HCL [Suspect]
     Route: 065
  7. FENTANYL CITRATE [Suspect]
     Route: 008
  8. FENTANYL [Suspect]
     Route: 065

REACTIONS (1)
  - TOXICITY TO VARIOUS AGENTS [None]
